FAERS Safety Report 5918918-7 (Version None)
Quarter: 2008Q4

REPORT INFORMATION
  Report Type: 
  Country: None (occurrence: None)
  Receive Date: 20081015
  Receipt Date: 20081007
  Transmission Date: 20090506
  Serious: Yes (Other)
  Sender: FDA-Public Use
  Company Number: CH-ROCHE-590587

PATIENT
  Age: 60 Year
  Sex: Female

DRUGS (3)
  1. BONIVA [Suspect]
     Indication: POLYMYALGIA RHEUMATICA
     Dosage: STOP DATE: OCTOBER 2008
     Route: 065
     Dates: start: 20080401, end: 20080101
  2. PREDNISONE [Concomitant]
     Indication: POLYMYALGIA RHEUMATICA
     Dosage: STOP DATE: OCTOBER 2008
     Dates: end: 20080101
  3. INTERFERON [Concomitant]
     Indication: MULTIPLE SCLEROSIS
     Dates: end: 20060101

REACTIONS (1)
  - ABSCESS JAW [None]
